FAERS Safety Report 6119675-4 (Version None)
Quarter: 2009Q1

REPORT INFORMATION
  Report Type: 
  Country: None (occurrence: None)
  Receive Date: 20090316
  Receipt Date: 20090312
  Transmission Date: 20090719
  Serious: Yes (Life-Threatening, Hospitalization)
  Sender: FDA-Public Use
  Company Number: PHHY2009JP09088

PATIENT
  Sex: Female
  Weight: 47 kg

DRUGS (5)
  1. DIOVAN [Suspect]
     Indication: HYPERTENSION
     Dosage: 160 MG, QD
     Route: 048
     Dates: start: 20071001, end: 20080218
  2. BISOPROLOL FUMARATE [Concomitant]
     Indication: HYPERTENSION
     Dosage: 5 MG
     Route: 048
     Dates: start: 20051114
  3. ATELEC [Concomitant]
     Indication: HYPERTENSION
     Dosage: 10 MG
     Route: 048
     Dates: start: 20051226
  4. PERINDOPRIL ERBUMINE [Concomitant]
     Indication: HYPERTENSION
     Dosage: 4 MG
     Route: 048
     Dates: start: 20060206
  5. AMARYL [Concomitant]
     Dosage: 1 MG
     Route: 048
     Dates: start: 20060320

REACTIONS (3)
  - ACUTE MYOCARDIAL INFARCTION [None]
  - ALTERED STATE OF CONSCIOUSNESS [None]
  - CARDIAC ARREST [None]
